FAERS Safety Report 16339235 (Version 1)
Quarter: 2019Q2

REPORT INFORMATION
  Report Type: Spontaneous
  Country: US (occurrence: US)
  Receive Date: 20190521
  Receipt Date: 20190521
  Transmission Date: 20190711
  Serious: No
  Sender: FDA-Public Use
  Company Number: US-AMAG PHARMACEUTICALS, INC.-AMAG201900936

PATIENT
  Age: 56 Year
  Sex: Female
  Weight: 57.6 kg

DRUGS (2)
  1. INTRAROSA [Suspect]
     Active Substance: PRASTERONE
     Indication: ATROPHIC VULVOVAGINITIS
     Dosage: 6.5 MG, QHS
     Route: 067
     Dates: start: 2018
  2. VITAMINS [Concomitant]
     Active Substance: VITAMINS
     Indication: VITAMIN SUPPLEMENTATION
     Dosage: UNK
     Route: 065

REACTIONS (3)
  - Underdose [Not Recovered/Not Resolved]
  - Off label use [Unknown]
  - Vaginal discharge [Recovered/Resolved]

NARRATIVE: CASE EVENT DATE: 2018
